FAERS Safety Report 18546398 (Version 1)
Quarter: 2020Q4

REPORT INFORMATION
  Report Type: Spontaneous
  Country: FR (occurrence: FR)
  Receive Date: 20201125
  Receipt Date: 20201125
  Transmission Date: 20210114
  Serious: Yes (Hospitalization)
  Sender: FDA-Public Use
  Company Number: NVSC2020FR308573

PATIENT
  Age: 64 Year
  Sex: Male
  Weight: 70 kg

DRUGS (3)
  1. ANAFRANIL [Suspect]
     Active Substance: CLOMIPRAMINE HYDROCHLORIDE
     Indication: INTENTIONAL OVERDOSE
     Dosage: UNK (NP)
     Route: 048
     Dates: start: 20201016, end: 20201016
  2. XANAX [Suspect]
     Active Substance: ALPRAZOLAM
     Indication: INTENTIONAL OVERDOSE
     Dosage: UNK (NP)
     Route: 048
     Dates: start: 20201016, end: 20201016
  3. ALCOHOL. [Suspect]
     Active Substance: ALCOHOL
     Indication: PRODUCT USED FOR UNKNOWN INDICATION
     Dosage: UNK (NP)
     Route: 048
     Dates: start: 20201016, end: 20201016

REACTIONS (5)
  - Electrocardiogram QT prolonged [Recovered/Resolved]
  - Mydriasis [Recovered/Resolved]
  - Coma [Recovered/Resolved]
  - Hypothermia [Recovered/Resolved]
  - Poisoning deliberate [Recovered/Resolved]

NARRATIVE: CASE EVENT DATE: 20201016
